FAERS Safety Report 18367074 (Version 1)
Quarter: 2020Q4

REPORT INFORMATION
  Report Type: Spontaneous
  Country: US (occurrence: US)
  Receive Date: 20201009
  Receipt Date: 20201009
  Transmission Date: 20210114
  Serious: No
  Sender: FDA-Public Use
  Company Number: US-PFIZER INC-2020387970

PATIENT
  Age: 72 Year
  Sex: Female

DRUGS (1)
  1. BOSULIF [Suspect]
     Active Substance: BOSUTINIB MONOHYDRATE
     Dosage: UNK, 4X/DAY (FOUR TABS A DAY)

REACTIONS (3)
  - Renal disorder [Unknown]
  - Hypoacusis [Unknown]
  - Blood creatinine abnormal [Unknown]
